FAERS Safety Report 24119034 (Version 1)
Quarter: 2024Q3

REPORT INFORMATION
  Report Type: Spontaneous
  Country: US (occurrence: None)
  Receive Date: 20240718
  Receipt Date: 20240718
  Transmission Date: 20241017
  Serious: No
  Sender: Public
  Company Number: None

PATIENT
  Age: 56 Year
  Sex: Female

DRUGS (1)
  1. KESIMPTA [Suspect]
     Active Substance: OFATUMUMAB
     Dates: start: 20240716, end: 20240718

REACTIONS (5)
  - Pyrexia [None]
  - Pain in extremity [None]
  - Sensitive skin [None]
  - Sensory disturbance [None]
  - Fear [None]

NARRATIVE: CASE EVENT DATE: 20240717
